FAERS Safety Report 8243512-5 (Version None)
Quarter: 2012Q1

REPORT INFORMATION
  Report Type: 
  Country: None (occurrence: None)
  Receive Date: 20120329
  Receipt Date: 20120315
  Transmission Date: 20120608
  Serious: Yes (Other)
  Sender: FDA-Public Use
  Company Number: PHFR2011IE05179

PATIENT
  Sex: Female

DRUGS (34)
  1. VALPROATE SODIUM [Concomitant]
     Dosage: 300 MG, UNK
     Dates: start: 20090101
  2. CAPTIN [Concomitant]
     Dosage: UNK UKN, UNK
  3. FLUPHENAZINE [Concomitant]
     Dosage: 100 MG, WEEKLY
     Route: 030
  4. CLOZARIL [Suspect]
     Dosage: 100 MG IN MORNING AND 250 MG IN NIGHT
     Dates: start: 20091103
  5. CLOZARIL [Suspect]
     Dosage: 150 MG, BID
     Route: 048
     Dates: start: 20101105, end: 20110902
  6. LITHIUM CARBONATE [Concomitant]
     Dosage: UNK UKN, UNK
     Dates: start: 20110830
  7. ALBUTEROL [Concomitant]
     Dosage: UNK UKN, QD
  8. KWELLS [Concomitant]
     Dosage: UNK UKN, TID
  9. FLUTICASONE PROPIONATE/SALMETEROL [Concomitant]
     Dosage: UNK UKN, BID
  10. ARIPIPRAZOLE [Concomitant]
  11. HALOPERIDOL [Concomitant]
  12. LITHIUM CARBONATE [Concomitant]
     Dates: start: 20110903
  13. LITHIUM CARBONATE [Concomitant]
     Indication: AFFECTIVE DISORDER
     Dosage: 408 MG
     Route: 048
     Dates: start: 20110830
  14. LAMOTRGINE [Concomitant]
     Dosage: 200 MG, BID
     Route: 048
  15. METHADONE HCL [Concomitant]
     Dosage: UNK
  16. PROPRANOLOL [Concomitant]
     Indication: TREMOR
     Dosage: 10 MG, UNK
     Route: 048
  17. SULPIRIDE [Concomitant]
     Dosage: 400 MG, BID
     Route: 048
  18. CLOZARIL [Suspect]
     Dosage: 200 MG, BID
     Dates: start: 20040501, end: 20040725
  19. CLOZARIL [Suspect]
     Dosage: 400 MG
     Route: 048
     Dates: start: 20090602
  20. MOVIPREP [Concomitant]
     Dosage: UNK UKN, TID
  21. CLOZARIL [Suspect]
     Indication: SCHIZOAFFECTIVE DISORDER
     Dosage: UNK UKN, UNK
     Route: 048
     Dates: start: 20040201
  22. CLOZARIL [Suspect]
     Dosage: UNK UKN, UNK
     Route: 048
     Dates: start: 20090101, end: 20090101
  23. IMIQUIMOD [Concomitant]
     Indication: ANOGENITAL WARTS
     Dosage: UNK  THRICE PER WEEK
     Route: 061
     Dates: start: 20110822, end: 20110902
  24. CYSTINE [Concomitant]
     Indication: HYPERTONIC BLADDER
     Dosage: 5 MG, BID
     Route: 048
  25. CYCLIZINE [Concomitant]
     Dosage: 500 MG, PRN
     Dates: start: 20110901
  26. OLANZAPINE [Concomitant]
     Dosage: 10 MG IN MORNING AND 20 MG IN NIGHT
     Route: 048
  27. CLOZARIL [Suspect]
     Dosage: 150 MG IN MORNING AND 300 MG IN NIGHT
     Route: 048
     Dates: end: 20050401
  28. CLOZARIL [Suspect]
     Dosage: 500 MG
     Route: 048
     Dates: start: 20090101, end: 20090901
  29. VALPROATE SODIUM [Concomitant]
     Indication: EPILEPSY
     Dosage: 1800 MG
     Route: 048
  30. VALPROATE SODIUM [Concomitant]
     Dosage: 700 MG, BID
     Dates: start: 20091103
  31. VALPROATE SODIUM [Concomitant]
     Dosage: 800 MG, BID
  32. CHLORPROMAZINE HCL [Concomitant]
     Dosage: 150 MG, QD
  33. GEINOLATE [Concomitant]
     Dosage: UNK
  34. LAMOTRGINE [Concomitant]
     Dosage: 200 MG, BID
     Route: 048

REACTIONS (12)
  - AFFECT LABILITY [None]
  - PERSECUTORY DELUSION [None]
  - SALIVARY GLAND PAIN [None]
  - MENTAL DISORDER [None]
  - AGGRESSION [None]
  - VOMITING [None]
  - THINKING ABNORMAL [None]
  - PAROTID GLAND ENLARGEMENT [None]
  - HALLUCINATION, AUDITORY [None]
  - DIFFERENTIAL WHITE BLOOD CELL COUNT ABNORMAL [None]
  - NEUTROPHIL COUNT DECREASED [None]
  - NAUSEA [None]
